FAERS Safety Report 5464944-4 (Version None)
Quarter: 2007Q3

REPORT INFORMATION
  Report Type: 
  Country: None (occurrence: None)
  Receive Date: 20070921
  Receipt Date: 20070910
  Transmission Date: 20080115
  Serious: Yes (Other)
  Sender: FDA-Public Use
  Company Number: BR-PFIZER INC-2007076828

PATIENT
  Sex: Female
  Weight: 69 kg

DRUGS (1)
  1. ALPRAZOLAM [Suspect]
     Indication: EMOTIONAL DISORDER
     Route: 048

REACTIONS (10)
  - ANGER [None]
  - ANXIETY [None]
  - DIZZINESS [None]
  - EMOTIONAL DISORDER [None]
  - GLUTAMATE DEHYDROGENASE INCREASED [None]
  - HYPERTENSION [None]
  - MALAISE [None]
  - MEMORY IMPAIRMENT [None]
  - NERVOUSNESS [None]
  - SINUSITIS [None]
